FAERS Safety Report 17204890 (Version 2)
Quarter: 2020Q1

REPORT INFORMATION
  Report Type: Report from Study
  Country: US (occurrence: US)
  Receive Date: 20191226
  Receipt Date: 20200108
  Transmission Date: 20200409
  Serious: No
  Sender: FDA-Public Use
  Company Number: US-ROCHE-2485494

PATIENT
  Sex: Female

DRUGS (2)
  1. COTELLIC [Suspect]
     Active Substance: COBIMETINIB
     Dosage: TAKE 3 TABLET(S) BY MOUTH DAILY DAYS 1-21, THEN 7
     Route: 048
  2. COTELLIC [Suspect]
     Active Substance: COBIMETINIB
     Indication: HISTIOCYTIC SARCOMA
     Dosage: FOR 21 CONSECUTIVE DAYS FOLLOWED BY 7 DAYS REST PERIOD
     Route: 065
     Dates: start: 20191220

REACTIONS (3)
  - Off label use [Unknown]
  - No adverse event [Unknown]
  - Intentional product use issue [Unknown]
